FAERS Safety Report 8261085-8 (Version None)
Quarter: 2012Q2

REPORT INFORMATION
  Report Type: 
  Country: None (occurrence: None)
  Receive Date: 20120405
  Receipt Date: 20120328
  Transmission Date: 20120825
  Serious: Yes (Other)
  Sender: FDA-Public Use
  Company Number: PHHY2012BR017855

PATIENT
  Sex: Female

DRUGS (5)
  1. ALENIA [Suspect]
     Indication: BRONCHITIS
  2. FORMOTEROL FUMARATE [Suspect]
     Indication: ASTHMA
     Dosage: 5 OR 6 INHALATIONS A DAY
  3. OMEPRAZOLE [Concomitant]
  4. RANITIDINE [Concomitant]
  5. FORMOTEROL FUMARATE [Suspect]
     Indication: BRONCHITIS

REACTIONS (7)
  - DYSGEUSIA [None]
  - BRONCHITIS [None]
  - CHEST PAIN [None]
  - PYREXIA [None]
  - ANOSMIA [None]
  - RHINORRHOEA [None]
  - DYSPNOEA [None]
